FAERS Safety Report 20480500 (Version 1)
Quarter: 2022Q1

REPORT INFORMATION
  Report Type: Spontaneous
  Country: US (occurrence: US)
  Receive Date: 20220216
  Receipt Date: 20220216
  Transmission Date: 20220424
  Serious: No
  Sender: FDA-Public Use
  Company Number: US-ADMA BIOLOGICS INC.-US-2021ADM000013

PATIENT
  Age: 73 Year
  Sex: Male
  Weight: 79.002 kg

DRUGS (16)
  1. BIVIGAM [Suspect]
     Active Substance: HUMAN IMMUNOGLOBULIN G
     Indication: Immune system disorder
     Dosage: 60 Q 4 WKS
     Dates: start: 20210322
  2. BIVIGAM [Suspect]
     Active Substance: HUMAN IMMUNOGLOBULIN G
     Indication: Immunodeficiency common variable
     Dosage: 60 Q 4 WKS
     Dates: start: 20210419
  3. BIVIGAM [Suspect]
     Active Substance: HUMAN IMMUNOGLOBULIN G
     Dosage: 60 Q 4 WKS
     Dates: start: 20210519
  4. BIVIGAM [Suspect]
     Active Substance: HUMAN IMMUNOGLOBULIN G
     Dosage: 60 Q 4 WKS
     Dates: start: 20210614
  5. ASPIRIN                            /00002701/ [Concomitant]
     Indication: Product used for unknown indication
     Dosage: UNK
  6. LEVOTHYROXINE                      /00068002/ [Concomitant]
     Indication: Product used for unknown indication
     Dosage: UNK
  7. METFORMIN                          /00082702/ [Concomitant]
     Indication: Product used for unknown indication
     Dosage: UNK
  8. MONTELUKAST                        /01362602/ [Concomitant]
     Indication: Product used for unknown indication
     Dosage: UNK
  9. BREO ELLIPTA [Concomitant]
     Active Substance: FLUTICASONE FUROATE\VILANTEROL TRIFENATATE
     Indication: Product used for unknown indication
     Dosage: UNK
  10. VENTOLIN [Concomitant]
     Active Substance: ALBUTEROL SULFATE
     Indication: Product used for unknown indication
     Dosage: UNK
  11. VITAMIN B12                        /00056201/ [Concomitant]
     Indication: Product used for unknown indication
     Dosage: UNK
  12. AZITHROMYCIN                       /00944302/ [Concomitant]
     Indication: Product used for unknown indication
     Dosage: UNK
  13. OMEPRAZOLE                         /00661202/ [Concomitant]
     Indication: Product used for unknown indication
     Dosage: UNK
  14. MELATONIN                          /07129401/ [Concomitant]
     Indication: Product used for unknown indication
     Dosage: UNK
  15. COMPLEXAN B                        /00302401/ [Concomitant]
     Indication: Product used for unknown indication
     Dosage: UNK
  16. CALTRATE WITH VITAMIN D [Concomitant]
     Active Substance: CALCIUM CARBONATE\CHOLECALCIFEROL
     Indication: Product used for unknown indication
     Dosage: UNK

REACTIONS (4)
  - Adverse drug reaction [Unknown]
  - Facial discomfort [Recovered/Resolved]
  - Pain [Recovered/Resolved]
  - Fatigue [Recovered/Resolved]

NARRATIVE: CASE EVENT DATE: 20210322
